FAERS Safety Report 14242425 (Version 1)
Quarter: 2017Q4

REPORT INFORMATION
  Report Type: Spontaneous
  Country: US (occurrence: None)
  Receive Date: 20171130
  Receipt Date: 20171130
  Transmission Date: 20180321
  Serious: Yes (Hospitalization)
  Sender: FDA-Public Use
  Company Number: None

PATIENT
  Age: 65 Year
  Sex: Male

DRUGS (1)
  1. OXALIPLATIN, 55 MG/SQ M [Suspect]
     Active Substance: OXALIPLATIN
     Indication: METASTASES TO PERITONEUM
     Route: 033

REACTIONS (4)
  - Abdominal pain [None]
  - Peritonitis [None]
  - Catheter site extravasation [None]
  - Stoma site erythema [None]

NARRATIVE: CASE EVENT DATE: 20171109
